FAERS Safety Report 5269924-X (Version None)
Quarter: 2007Q1

REPORT INFORMATION
  Report Type: 
  Country: None (occurrence: None)
  Receive Date: 20061212
  Receipt Date: 20060804
  Transmission Date: 20070707
  Serious: No
  Sender: FDA-Public Use
  Company Number: E3810-00122-SPO-US

PATIENT
  Age: 64 Year
  Sex: Male
  Weight: 89 kg

DRUGS (4)
  1. ACIPHEX [Suspect]
     Indication: GASTROOESOPHAGEAL REFLUX DISEASE
     Dosage: 20 MG, UNK; ORAL
     Route: 048
     Dates: start: 20010101, end: 20060802
  2. PROZAC [Concomitant]
  3. TOPORAL [Concomitant]
  4. CLOZAPINE [Concomitant]

REACTIONS (1)
  - AGRANULOCYTOSIS [None]
